FAERS Safety Report 5731970-7 (Version None)
Quarter: 2008Q2

REPORT INFORMATION
  Report Type: 
  Country: None (occurrence: None)
  Receive Date: 20080508
  Receipt Date: 20080428
  Transmission Date: 20081010
  Serious: Yes (Death, Disabling)
  Sender: FDA-Public Use
  Company Number: JP-JNJFOC-20080305750

PATIENT
  Sex: Male

DRUGS (5)
  1. ITRACONAZOLE [Suspect]
     Route: 041
  2. ITRACONAZOLE [Suspect]
     Indication: RESPIRATORY MONILIASIS
     Route: 041
  3. UNASYN [Concomitant]
     Route: 042
  4. ALEVIATIN [Concomitant]
     Route: 042
  5. ALPROSTADIL [Concomitant]
     Route: 042

REACTIONS (2)
  - CARDIAC FAILURE [None]
  - PYREXIA [None]
